FAERS Safety Report 4462297-1 (Version None)
Quarter: 2004Q3

REPORT INFORMATION
  Report Type: 
  Country: None (occurrence: None)
  Receive Date: 20040924
  Receipt Date: 20040911
  Transmission Date: 20050211
  Serious: Yes (Death)
  Sender: FDA-Public Use
  Company Number: 2004043606

PATIENT
  Age: 60 Year
  Sex: Male

DRUGS (3)
  1. GEODON [Suspect]
     Indication: DEPRESSION
     Dosage: 40 MG (20 MG, 2 IN 1 D),
     Dates: start: 20040604, end: 20040610
  2. ZOLOFT [Suspect]
     Indication: OBSESSIVE-COMPULSIVE DISORDER
     Dosage: 100 MG (100 MG, 1 IN 1 D), ORAL
     Route: 048
     Dates: start: 19890101, end: 20040101
  3. ZALEPLON (ZALEPLON) [Suspect]
     Indication: INSOMNIA
     Dosage: 10 MG (10 MG, 1 IN 1 D), ORAL
     Route: 048
     Dates: start: 20040607, end: 20040601

REACTIONS (6)
  - BIPOLAR DISORDER [None]
  - COMPLETED SUICIDE [None]
  - INSOMNIA [None]
  - REFUSAL OF TREATMENT BY PATIENT [None]
  - SUICIDAL IDEATION [None]
  - THERMAL BURN [None]
